FAERS Safety Report 4565357-X (Version None)
Quarter: 2005Q1

REPORT INFORMATION
  Report Type: 
  Country: None (occurrence: None)
  Receive Date: 20050126
  Receipt Date: 20050110
  Transmission Date: 20050727
  Serious: Yes (Hospitalization)
  Sender: FDA-Public Use
  Company Number: USA041183768

PATIENT
  Age: 52 Year
  Sex: Female

DRUGS (1)
  1. GEMZAR [Suspect]
     Indication: BREAST CANCER METASTATIC
     Dosage: 1000 MG/M2
     Dates: start: 20040501, end: 20040501

REACTIONS (4)
  - CAPILLARY LEAK SYNDROME [None]
  - DISEASE RECURRENCE [None]
  - DYSPNOEA [None]
  - MALIGNANT PLEURAL EFFUSION [None]
